FAERS Safety Report 7249083-4 (Version None)
Quarter: 2011Q1

REPORT INFORMATION
  Report Type: 
  Country: None (occurrence: None)
  Receive Date: 20110121
  Receipt Date: 20110121
  Transmission Date: 20110831
  Serious: Yes (Disabling)
  Sender: FDA-Public Use
  Company Number: None

PATIENT
  Age: 5 Year
  Sex: Female
  Weight: 25 kg

DRUGS (1)
  1. EPIPEN [Suspect]
     Indication: HYPERSENSITIVITY
     Dosage: 0.15 MG AS NEEDED IM
     Route: 030
     Dates: start: 20110118, end: 20110118

REACTIONS (3)
  - NEEDLE ISSUE [None]
  - SUTURE INSERTION [None]
  - PRODUCT QUALITY ISSUE [None]
